FAERS Safety Report 8617488-2 (Version None)
Quarter: 2012Q3

REPORT INFORMATION
  Report Type: 
  Country: None (occurrence: None)
  Receive Date: 20120824
  Receipt Date: 20111027
  Transmission Date: 20120928
  Serious: No
  Sender: FDA-Public Use
  Company Number: US-ASTRAZENECA-2011SE65544

PATIENT

DRUGS (5)
  1. PROAIR HFA [Concomitant]
  2. ALLEGRA [Concomitant]
  3. NEXIUM [Suspect]
     Route: 048
  4. SINGULAIR [Concomitant]
  5. SYMBICORT [Suspect]
     Dosage: 160/4.5 MCG UNK
     Route: 055

REACTIONS (2)
  - DRUG DOSE OMISSION [None]
  - ASTHMA [None]
